FAERS Safety Report 11220245 (Version 1)
Quarter: 2015Q2

REPORT INFORMATION
  Report Type: Report from Study
  Country: US (occurrence: US)
  Receive Date: 20150625
  Receipt Date: 20150625
  Transmission Date: 20150821
  Serious: No
  Sender: FDA-Public Use
  Company Number: US-EXELIXIS-CABO-14004954

PATIENT
  Sex: Male
  Weight: 64 kg

DRUGS (2)
  1. CABOZANTINIB [Suspect]
     Active Substance: CABOZANTINIB
     Indication: RENAL CANCER
     Dosage: 140 MG, QD
     Route: 048
     Dates: start: 20140929, end: 20141016
  2. CABOZANTINIB [Suspect]
     Active Substance: CABOZANTINIB
     Dosage: 40 MG, QD
     Route: 048
     Dates: start: 20141021

REACTIONS (5)
  - Pain in extremity [Not Recovered/Not Resolved]
  - Hypertension [Unknown]
  - Hyperkeratosis [Not Recovered/Not Resolved]
  - Skin ulcer [Unknown]
  - Off label use [Unknown]
